FAERS Safety Report 4308810-6 (Version None)
Quarter: 2004Q1

REPORT INFORMATION
  Report Type: 
  Country: None (occurrence: None)
  Receive Date: 20040227
  Receipt Date: 20040218
  Transmission Date: 20041129
  Serious: Yes (Death)
  Sender: FDA-Public Use
  Company Number: US-JNJFOC-20040105714

PATIENT
  Age: 89 Year
  Sex: Male
  Weight: 73.0291 kg

DRUGS (1)
  1. RISPERDAL [Suspect]
     Indication: DRUG USE FOR UNKNOWN INDICATION
     Dosage: 2.5 MG, 1 IN 1 DAY, ORAL
     Route: 048

REACTIONS (1)
  - DEATH [None]
